FAERS Safety Report 23061926 (Version 1)
Quarter: 2023Q4

REPORT INFORMATION
  Report Type: Report from Study
  Country: US (occurrence: US)
  Receive Date: 20231013
  Receipt Date: 20231013
  Transmission Date: 20240110
  Serious: No
  Sender: FDA-Public Use
  Company Number: US-002147023-PHEH2014US022937

PATIENT
  Age: 43 Year
  Sex: Female

DRUGS (5)
  1. GILENYA [Suspect]
     Active Substance: FINGOLIMOD HYDROCHLORIDE
     Indication: Multiple sclerosis
     Dosage: 0.5 MG, QD
     Route: 048
     Dates: start: 20121004, end: 20141014
  2. METHOTREXATE SODIUM [Suspect]
     Active Substance: METHOTREXATE SODIUM
     Indication: Spondylitis
     Dosage: UNK
     Route: 065
     Dates: start: 20220228, end: 20230323
  3. SULFASALAZINE [Suspect]
     Active Substance: SULFASALAZINE
     Indication: Spondylitis
     Dosage: UNK
     Route: 065
     Dates: start: 20210730, end: 20230323
  4. IBUPROFEN [Suspect]
     Active Substance: IBUPROFEN
     Indication: Spondylitis
     Dosage: UNK
     Route: 065
     Dates: start: 20160127
  5. CELECOXIB [Suspect]
     Active Substance: CELECOXIB
     Indication: Spondylitis
     Dosage: UNK
     Route: 065
     Dates: start: 20220103, end: 20220228

REACTIONS (4)
  - Oedema peripheral [Unknown]
  - Hepatic enzyme increased [Unknown]
  - White blood cell count decreased [Unknown]
  - Therapeutic product ineffective [Unknown]

NARRATIVE: CASE EVENT DATE: 20141001
